FAERS Safety Report 10902442 (Version 1)
Quarter: 2015Q1

REPORT INFORMATION
  Report Type: Spontaneous
  Country: JP (occurrence: JP)
  Receive Date: 20150310
  Receipt Date: 20150310
  Transmission Date: 20150721
  Serious: Yes (Hospitalization, Other)
  Sender: FDA-Public Use
  Company Number: JP-PERRIGO-15JP002565

PATIENT
  Age: 36 Year
  Sex: Female

DRUGS (5)
  1. FAMOTIDINE. [Suspect]
     Active Substance: FAMOTIDINE
     Indication: PRODUCT USED FOR UNKNOWN INDICATION
     Route: 065
  2. DOMPERIDONE [Suspect]
     Active Substance: DOMPERIDONE
     Indication: PRODUCT USED FOR UNKNOWN INDICATION
     Route: 065
  3. AZULENE SODIUM SULFONATE [Suspect]
     Active Substance: SODIUM GUALENATE
     Indication: PRODUCT USED FOR UNKNOWN INDICATION
     Route: 065
  4. IBUPROFEN 200 MG 604 [Suspect]
     Active Substance: IBUPROFEN
     Indication: HEADACHE
     Dosage: UNKNOWN, OCCASIONALLY
     Route: 048
  5. IBUPROFEN 200 MG 604 [Suspect]
     Active Substance: IBUPROFEN
     Dosage: UNKNOWN, QID
     Route: 048

REACTIONS (6)
  - Hypersensitivity [Recovered/Resolved]
  - Chromaturia [Recovered/Resolved]
  - Drug-induced liver injury [Recovered/Resolved]
  - Pyrexia [Recovered/Resolved]
  - Erythema multiforme [Recovered/Resolved]
  - Abdominal pain upper [Unknown]
